FAERS Safety Report 23274014 (Version 2)
Quarter: 2024Q2

REPORT INFORMATION
  Report Type: Spontaneous
  Country: US (occurrence: US)
  Receive Date: 20231208
  Receipt Date: 20240612
  Transmission Date: 20240716
  Serious: No
  Sender: FDA-Public Use
  Company Number: US-SA-SAC20231205000782

PATIENT
  Age: 6 Year
  Sex: Female

DRUGS (4)
  1. DUPIXENT [Suspect]
     Active Substance: DUPILUMAB
     Indication: Dermatitis atopic
     Dosage: 300 MG, Q4W
     Route: 058
  2. FLOVENT HFA [Concomitant]
     Active Substance: FLUTICASONE PROPIONATE
     Dosage: UNK, PRN (USES INHALER AS NEEDED)
     Route: 055
  3. SINGULAIR [Concomitant]
     Active Substance: MONTELUKAST SODIUM
  4. ALBUTEROL SULFATE [Concomitant]
     Active Substance: ALBUTEROL SULFATE
     Dosage: UNK, PRN (USES INHALER AS NEEDED)
     Route: 055

REACTIONS (3)
  - Dry skin [Not Recovered/Not Resolved]
  - Skin discolouration [Not Recovered/Not Resolved]
  - Rash macular [Not Recovered/Not Resolved]

NARRATIVE: CASE EVENT DATE: 20231101
